FAERS Safety Report 15786103 (Version 1)
Quarter: 2019Q1

REPORT INFORMATION
  Report Type: Spontaneous
  Country: JP (occurrence: JP)
  Receive Date: 20190103
  Receipt Date: 20190103
  Transmission Date: 20190417
  Serious: Yes (Other)
  Sender: FDA-Public Use
  Company Number: JP-PFIZER INC-2018532246

PATIENT
  Age: 56 Year
  Sex: Male

DRUGS (2)
  1. LYRICA [Suspect]
     Active Substance: PREGABALIN
     Dosage: 100 MG, UNK (25MG 4 TABLETS)
     Dates: start: 20180817, end: 2018
  2. LYRICA [Suspect]
     Active Substance: PREGABALIN
     Indication: LUMBAR SPINAL STENOSIS
     Dosage: 50 MG, 1X/DAY (25MG 2 TABLETS BEFORE BED)
     Dates: start: 20180803, end: 201808

REACTIONS (4)
  - Dysgeusia [Unknown]
  - Alopecia [Unknown]
  - Diarrhoea [Unknown]
  - Cronkhite-Canada syndrome [Unknown]

NARRATIVE: CASE EVENT DATE: 2018
